FAERS Safety Report 6481004-4 (Version None)
Quarter: 2009Q4

REPORT INFORMATION
  Report Type: 
  Country: None (occurrence: None)
  Receive Date: 20091208
  Receipt Date: 20091127
  Transmission Date: 20100525
  Serious: Yes (Hospitalization)
  Sender: FDA-Public Use
  Company Number: PHHY2009GB51664

PATIENT
  Sex: Male

DRUGS (2)
  1. CLOZARIL [Suspect]
     Indication: SCHIZOPHRENIA
     Dosage: 200 MG, UNK
     Dates: start: 20061013, end: 20091020
  2. MODECATE [Concomitant]
     Dosage: 50 MG, BIW

REACTIONS (3)
  - MENTAL IMPAIRMENT [None]
  - NAUSEA [None]
  - TREATMENT NONCOMPLIANCE [None]
